FAERS Safety Report 6426513-9 (Version None)
Quarter: 2009Q4

REPORT INFORMATION
  Report Type: 
  Country: None (occurrence: None)
  Receive Date: 20091030
  Receipt Date: 20091023
  Transmission Date: 20100525
  Serious: Yes (Other)
  Sender: FDA-Public Use
  Company Number: 2009SP032720

PATIENT
  Sex: Male

DRUGS (2)
  1. INTRON A [Suspect]
     Indication: OFF LABEL USE
  2. INTRON A [Suspect]
     Indication: PEYRONIE'S DISEASE

REACTIONS (1)
  - MYELITIS TRANSVERSE [None]
